FAERS Safety Report 8498260-3 (Version None)
Quarter: 2012Q3

REPORT INFORMATION
  Report Type: 
  Country: None (occurrence: None)
  Receive Date: 20120709
  Receipt Date: 20120621
  Transmission Date: 20120928
  Serious: No
  Sender: FDA-Public Use
  Company Number: US-AMGEN-USASP2012025285

PATIENT
  Age: 42 Year
  Sex: Female

DRUGS (2)
  1. ENBREL [Suspect]
     Indication: RHEUMATOID ARTHRITIS
     Dosage: 50 MG, QWK
     Route: 058
     Dates: start: 20120410, end: 20120507
  2. BENADRYL [Concomitant]
     Dosage: 50 UNK, PRN
     Route: 048

REACTIONS (4)
  - ABDOMINAL DISTENSION [None]
  - ERYTHEMA [None]
  - PRURITUS GENERALISED [None]
  - DYSPNOEA [None]
